FAERS Safety Report 14831973 (Version 1)
Quarter: 2018Q2

REPORT INFORMATION
  Report Type: Report from Study
  Country: IT (occurrence: IT)
  Receive Date: 20180501
  Receipt Date: 20180501
  Transmission Date: 20180711
  Serious: Yes (Disabling, Other)
  Sender: FDA-Public Use
  Company Number: IT-BAYER-2018-079300

PATIENT
  Age: 64 Year
  Sex: Male

DRUGS (8)
  1. CALCITRIOL. [Suspect]
     Active Substance: CALCITRIOL
     Dosage: UNK
  2. PREDNISOLONE. [Interacting]
     Active Substance: PREDNISOLONE
     Dosage: UNK
  3. SIMVASTATIN. [Interacting]
     Active Substance: SIMVASTATIN
     Dosage: UNK
  4. EZETIMIBE. [Suspect]
     Active Substance: EZETIMIBE
     Dosage: UNK
  5. AZATHIOPRINE. [Interacting]
     Active Substance: AZATHIOPRINE
     Dosage: UNK
  6. ACETYLSALICYLIC ACID [Suspect]
     Active Substance: ASPIRIN
     Dosage: UNK
  7. INFLUENZA VIRUS VACCINE [Interacting]
     Active Substance: INFLUENZA VIRUS VACCINE
     Dosage: UNK
  8. TACROLIMUS. [Interacting]
     Active Substance: TACROLIMUS
     Dosage: UNK

REACTIONS (9)
  - Myopathy [None]
  - Proteinuria [None]
  - Upper respiratory tract infection [None]
  - Pyrexia [None]
  - Acute kidney injury [None]
  - Drug interaction [None]
  - Potentiating drug interaction [None]
  - Rhabdomyolysis [None]
  - Muscular weakness [None]
